FAERS Safety Report 21668128 (Version 1)
Quarter: 2022Q4

REPORT INFORMATION
  Report Type: Spontaneous
  Country: DK (occurrence: DK)
  Receive Date: 20221201
  Receipt Date: 20221201
  Transmission Date: 20230113
  Serious: Yes (Hospitalization)
  Sender: FDA-Public Use
  Company Number: None

PATIENT
  Age: 21 Year
  Sex: Female

DRUGS (2)
  1. FLUOXETINE [Interacting]
     Active Substance: FLUOXETINE HYDROCHLORIDE
     Indication: Depressed mood
     Dosage: 40 MG, QD(INCREASED FROM 10 MG ON UNKNOWN DATE)
     Route: 048
     Dates: start: 201807
  2. CLOZAPINE [Interacting]
     Active Substance: CLOZAPINE
     Indication: Psychotic symptom
     Dosage: UNK(DOSAGE REDUCED ON UNKNOWN DATE (BEFORE OCT202
     Route: 048
     Dates: start: 201809, end: 202011

REACTIONS (4)
  - Psychotic symptom [Unknown]
  - Hallucination [Recovered/Resolved]
  - Therapeutic product effect decreased [Recovered/Resolved]
  - Drug interaction [Recovered/Resolved]

NARRATIVE: CASE EVENT DATE: 20200101
